FAERS Safety Report 21678297 (Version 1)
Quarter: 2022Q4

REPORT INFORMATION
  Report Type: Spontaneous
  Country: CZ (occurrence: CZ)
  Receive Date: 20221203
  Receipt Date: 20221203
  Transmission Date: 20230113
  Serious: Yes (Hospitalization)
  Sender: FDA-Public Use
  Company Number: None

PATIENT
  Age: 26 Year
  Sex: Female

DRUGS (4)
  1. AZITHROMYCIN [Suspect]
     Active Substance: AZITHROMYCIN
     Indication: Product used for unknown indication
     Dosage: 1500 MILLIGRAM DAILY; 3X500 MG
     Dates: start: 20201013, end: 20201013
  2. BISULEPIN [Suspect]
     Active Substance: BISULEPIN
     Indication: Product used for unknown indication
     Dosage: 80 MILLIGRAM DAILY; 40X 2MG
     Dates: start: 20201013, end: 20201013
  3. LANSOPRAZOLE [Suspect]
     Active Substance: LANSOPRAZOLE
     Indication: Product used for unknown indication
     Dosage: 120 MILLIGRAM DAILY; 4X 30MG
     Dates: start: 20201013, end: 20201013
  4. ACETAMINOPHEN\CAFFEINE\GUAIFENESIN [Suspect]
     Active Substance: ACETAMINOPHEN\CAFFEINE\GUAIFENESIN
     Indication: Product used for unknown indication
     Dosage: TOTAL DOSE OF PARACETAMOL 2600 MG, COFFEIN 560 MG A GUAFENASIN 1040 MG , UNIT DOSE : 8 DF
     Dates: start: 20201013, end: 20201013

REACTIONS (2)
  - Suicide attempt [Unknown]
  - Intentional overdose [Unknown]

NARRATIVE: CASE EVENT DATE: 20201013
